FAERS Safety Report 15618763 (Version 1)
Quarter: 2018Q4

REPORT INFORMATION
  Report Type: Spontaneous
  Country: US (occurrence: US)
  Receive Date: 20181114
  Receipt Date: 20181114
  Transmission Date: 20190205
  Serious: Yes (Other)
  Sender: FDA-Public Use
  Company Number: None

PATIENT
  Age: 66 Year
  Sex: Female
  Weight: 56.7 kg

DRUGS (17)
  1. KIDNEY ESSENTIALS [Concomitant]
  2. FISH OIL [Concomitant]
     Active Substance: FISH OIL
  3. LIVER ESSENTIALS [Concomitant]
  4. ZINC. [Concomitant]
     Active Substance: ZINC
  5. TRAMADOL. [Suspect]
     Active Substance: TRAMADOL
  6. IRON [Concomitant]
     Active Substance: IRON
  7. MELATONIN [Concomitant]
     Active Substance: MELATONIN
  8. BABY ASPIRIN [Concomitant]
     Active Substance: ASPIRIN
  9. CALCIUM [Concomitant]
     Active Substance: CALCIUM
  10. UNISOM SLEEPTABS [Concomitant]
     Active Substance: DOXYLAMINE SUCCINATE
  11. CAT^S CLAW [Concomitant]
     Active Substance: CAT^S CLAW
  12. HYDROMORPHONE [Suspect]
     Active Substance: HYDROMORPHONE
     Indication: KNEE ARTHROPLASTY
     Dosage: ?          QUANTITY:1 TABLET(S);?
     Route: 048
     Dates: start: 20181001, end: 20181008
  13. MULTI-ENZYME [Concomitant]
  14. ALOE VERA [Concomitant]
     Active Substance: ALOE VERA LEAF
  15. OXYCODONE/ACETAMINOPHEN [Suspect]
     Active Substance: ACETAMINOPHEN\OXYCODONE HYDROCHLORIDE
     Indication: KNEE ARTHROPLASTY
     Dosage: ?          QUANTITY:1 TABLET(S);?
     Route: 048
     Dates: start: 20181009, end: 20181020
  16. HORSE CHESTNUT [Concomitant]
     Active Substance: HORSE CHESTNUT
  17. MAGNESIUM [Concomitant]
     Active Substance: MAGNESIUM

REACTIONS (6)
  - Muscle mass [None]
  - Myalgia [None]
  - Urinary retention [None]
  - Bladder pain [None]
  - Arthralgia [None]
  - Joint range of motion decreased [None]

NARRATIVE: CASE EVENT DATE: 20181001
